FAERS Safety Report 17691194 (Version 2)
Quarter: 2020Q2

REPORT INFORMATION
  Report Type: Spontaneous
  Country: US (occurrence: US)
  Receive Date: 20200422
  Receipt Date: 20200427
  Transmission Date: 20200714
  Serious: Yes (Other)
  Sender: FDA-Public Use
  Company Number: US-CIPLA LTD.-2020US02783

PATIENT

DRUGS (10)
  1. MULTIVITAMINS [VITAMINS NOS] [Concomitant]
     Active Substance: VITAMINS
     Indication: PRODUCT USED FOR UNKNOWN INDICATION
     Dosage: UNK
     Route: 065
  2. ALPRAZOLAM. [Concomitant]
     Active Substance: ALPRAZOLAM
     Indication: ANXIETY
  3. NADOLOL. [Suspect]
     Active Substance: NADOLOL
     Dosage: UNK, BID, HALF PILL IN THE MORNING AROUND 8:30; HALF IN NIGHT AT AROUND 22:30
     Route: 048
     Dates: start: 202003
  4. PROBIOTICS NOS [Concomitant]
     Active Substance: PROBIOTICS NOS
     Indication: PRODUCT USED FOR UNKNOWN INDICATION
     Dosage: UNK, TWO PER DAY
     Route: 065
  5. NADOLOL. [Suspect]
     Active Substance: NADOLOL
     Indication: ARRHYTHMIA
     Dosage: UNK, CORGARD
     Route: 065
     Dates: start: 1986
  6. NADOLOL. [Suspect]
     Active Substance: NADOLOL
     Dosage: 20 MILLIGRAM, QD, TOOK MORNING DOSE AT AROUND 10:30 (HALF OF 40 MG TABLET)
     Route: 048
     Dates: start: 20200409
  7. ALPRAZOLAM. [Concomitant]
     Active Substance: ALPRAZOLAM
     Indication: SLEEP DISORDER
     Dosage: 0.25 (UNITS UNSPECIFIED), PRN AT NIGHT, TAKES HALF PILL
     Route: 065
     Dates: start: 2017
  8. NADOLOL. [Suspect]
     Active Substance: NADOLOL
     Dosage: UNK, DIFFERENT MANUFACTURERS
     Route: 065
  9. IPRATROPIUM BROMIDE. [Concomitant]
     Active Substance: IPRATROPIUM BROMIDE
     Indication: NASAL DISORDER
     Dosage: 0.03 %, QD
     Route: 065
     Dates: start: 2019
  10. ALBUTEROL [SALBUTAMOL] [Concomitant]
     Active Substance: ALBUTEROL
     Indication: DYSPNOEA
     Dosage: UNK, PRN AS RESCUE INHALER, USE 3 TO 5 TIMES PER MONTH AND USE IT UP TO 150 TIMES PER MONTH
     Route: 065

REACTIONS (4)
  - Arrhythmia [Not Recovered/Not Resolved]
  - Off label use [Unknown]
  - Product use in unapproved indication [Unknown]
  - Headache [Recovered/Resolved]

NARRATIVE: CASE EVENT DATE: 1996
